FAERS Safety Report 6916330-5 (Version None)
Quarter: 2010Q3

REPORT INFORMATION
  Report Type: 
  Country: None (occurrence: None)
  Receive Date: 20100804
  Receipt Date: 20100722
  Transmission Date: 20110219
  Serious: Yes (Hospitalization, Other)
  Sender: FDA-Public Use
  Company Number: 7012040

PATIENT
  Age: 47 Year
  Sex: Female
  Weight: 85 kg

DRUGS (13)
  1. REBIF [Suspect]
     Indication: MULTIPLE SCLEROSIS
     Dosage: 44 MCG, 3 IN 1 WK, SUBCUTANEOUS
     Route: 058
     Dates: start: 20100607
  2. LEVOCETIRIZINE (LEVOCETIRIZINE) [Concomitant]
  3. QUINAPRIL HCL [Concomitant]
  4. VERAPAMIL [Concomitant]
  5. AMITRIPTYLINE HCL [Concomitant]
  6. AMILORIDE-HYDROCHLOORTHIAZID (MODURETIC) [Concomitant]
  7. ACETIC ACID (ACETIC ACID) [Concomitant]
  8. SINGULAIR [Concomitant]
  9. METFORMIN HCL [Concomitant]
  10. SERETIDE DISKUS (SERETIDE /01420901/) [Concomitant]
  11. CODEINE PHOSPHATE AND ACETAMINOPHEN [Concomitant]
  12. CLONAZEPAM [Concomitant]
  13. TRAMADOL HCL [Concomitant]

REACTIONS (6)
  - ARRHYTHMIA [None]
  - LOSS OF CONSCIOUSNESS [None]
  - MALAISE [None]
  - NAUSEA [None]
  - OXYGEN SATURATION DECREASED [None]
  - VOMITING [None]
